FAERS Safety Report 4982034-1 (Version None)
Quarter: 2006Q2

REPORT INFORMATION
  Report Type: 
  Country: None (occurrence: None)
  Receive Date: 20060425
  Receipt Date: 20051221
  Transmission Date: 20061013
  Serious: Yes (Hospitalization, Disabling)
  Sender: FDA-Public Use
  Company Number: US-MERCK-0512USA03478

PATIENT
  Age: 44 Year
  Sex: Male
  Weight: 107 kg

DRUGS (6)
  1. VIOXX [Suspect]
     Indication: MONARTHRITIS
     Route: 048
     Dates: start: 19990601, end: 20021003
  2. VIOXX [Suspect]
     Indication: ARTHRITIS
     Route: 048
     Dates: start: 19990601, end: 20021003
  3. MOBIC [Concomitant]
     Indication: ARTHRITIS
     Route: 065
  4. MOBIC [Concomitant]
     Indication: PAIN
     Route: 065
  5. REGLAN [Concomitant]
     Route: 065
  6. ASPIRIN [Concomitant]
     Route: 065
     Dates: start: 19561101

REACTIONS (5)
  - ANXIETY [None]
  - BLOOD CHOLESTEROL INCREASED [None]
  - CHEST PAIN [None]
  - GASTRIC DISORDER [None]
  - MYOCARDIAL INFARCTION [None]
